FAERS Safety Report 24094887 (Version 2)
Quarter: 2024Q3

REPORT INFORMATION
  Report Type: Spontaneous
  Country: US (occurrence: US)
  Receive Date: 20240716
  Receipt Date: 20240806
  Transmission Date: 20241016
  Serious: Yes (Other)
  Sender: TEVA
  Company Number: US-TEVA-VS-3217825

PATIENT
  Age: 63 Year
  Sex: Male

DRUGS (2)
  1. CARVEDILOL [Interacting]
     Active Substance: CARVEDILOL
     Indication: Acute myocardial infarction
     Route: 065
  2. ATENOLOL [Interacting]
     Active Substance: ATENOLOL
     Indication: Acute myocardial infarction
     Route: 065

REACTIONS (4)
  - Drug interaction [Unknown]
  - Hypotension [Unknown]
  - Bradycardia [Unknown]
  - Product prescribing error [Unknown]
